FAERS Safety Report 4968727-0 (Version None)
Quarter: 2006Q2

REPORT INFORMATION
  Report Type: 
  Country: None (occurrence: None)
  Receive Date: 20060405
  Receipt Date: 20060320
  Transmission Date: 20061013
  Serious: Yes (Death, Hospitalization, Other)
  Sender: FDA-Public Use
  Company Number: FR-2005-027676

PATIENT
  Age: 74 Year
  Sex: Female

DRUGS (2)
  1. FLUDARA [Suspect]
     Indication: CHRONIC LYMPHOCYTIC LEUKAEMIA
     Dosage: 6 CYCLES, ORAL
     Route: 048
     Dates: start: 20001001, end: 20010401
  2. LEVOTHYROXINE SODIUM [Concomitant]

REACTIONS (2)
  - ACUTE MONOCYTIC LEUKAEMIA [None]
  - CHROMOSOME ABNORMALITY [None]
